FAERS Safety Report 19244933 (Version 1)
Quarter: 2021Q2

REPORT INFORMATION
  Report Type: Spontaneous
  Country: US (occurrence: US)
  Receive Date: 20210511
  Receipt Date: 20210511
  Transmission Date: 20210717
  Serious: Yes (Other)
  Sender: FDA-Public Use
  Company Number: US-ORGANON-O2105USA000602

PATIENT
  Sex: Female
  Weight: 77.1 kg

DRUGS (1)
  1. NEXPLANON [Suspect]
     Active Substance: ETONOGESTREL
     Indication: CONTRACEPTION
     Dosage: 1 IMPLANT FOR 3 YEARS, LEFT ARM
     Route: 059
     Dates: start: 20200318

REACTIONS (8)
  - Nausea [Unknown]
  - Dyspnoea [Unknown]
  - Menstruation irregular [Unknown]
  - Decreased appetite [Unknown]
  - Syncope [Unknown]
  - Heavy menstrual bleeding [Unknown]
  - Dizziness [Unknown]
  - Adverse drug reaction [Unknown]

NARRATIVE: CASE EVENT DATE: 2021
